FAERS Safety Report 9780363 (Version 1)
Quarter: 2013Q4

REPORT INFORMATION
  Report Type: Spontaneous
  Country: FI (occurrence: FI)
  Receive Date: 20131224
  Receipt Date: 20131224
  Transmission Date: 20140711
  Serious: Yes (Other)
  Sender: FDA-Public Use
  Company Number: FI-ROCHE-1321486

PATIENT
  Age: 50 Year
  Sex: Female

DRUGS (7)
  1. RITUXIMAB [Suspect]
     Indication: GRANULOMATOSIS WITH POLYANGIITIS
     Dosage: FOUR INFUSIONS
     Route: 042
     Dates: start: 200811
  2. RITUXIMAB [Suspect]
     Dosage: FOUR INFUSIONS
     Route: 042
     Dates: start: 200906
  3. CYCLOPHOSPHAMIDE [Suspect]
     Indication: GRANULOMATOSIS WITH POLYANGIITIS
     Route: 048
  4. MEDROL [Concomitant]
     Dosage: 500MGX 3
     Route: 042
     Dates: start: 200811
  5. AZATHIOPRINE [Concomitant]
     Indication: GRANULOMATOSIS WITH POLYANGIITIS
     Route: 065
     Dates: start: 200908
  6. METHOTREXATE [Concomitant]
     Indication: GRANULOMATOSIS WITH POLYANGIITIS
     Route: 065
     Dates: start: 200909
  7. PREDNISOLON [Concomitant]
     Indication: GRANULOMATOSIS WITH POLYANGIITIS
     Route: 065

REACTIONS (4)
  - Aspergillus infection [Unknown]
  - Actinomycosis [Unknown]
  - Hepatic enzyme increased [Unknown]
  - Lung infection [Unknown]
